FAERS Safety Report 6318025-8 (Version None)
Quarter: 2009Q3

REPORT INFORMATION
  Report Type: 
  Country: None (occurrence: None)
  Receive Date: 20090821
  Receipt Date: 20090811
  Transmission Date: 20100115
  Serious: Yes (Death, Life-Threatening)
  Sender: FDA-Public Use
  Company Number: BE-GENENTECH-288587

PATIENT
  Sex: Male

DRUGS (11)
  1. LUCENTIS [Suspect]
     Indication: DRUG USE FOR UNKNOWN INDICATION
     Dosage: UNK
     Route: 031
     Dates: start: 20080301
  2. LUCENTIS [Suspect]
     Dosage: UNK
     Route: 031
     Dates: start: 20080501
  3. LIPANTHYL [Concomitant]
     Indication: DRUG USE FOR UNKNOWN INDICATION
  4. LOFTYL [Concomitant]
     Indication: DRUG USE FOR UNKNOWN INDICATION
  5. EMCONCOR [Concomitant]
     Indication: DRUG USE FOR UNKNOWN INDICATION
  6. COAPROVEL [Concomitant]
     Indication: DRUG USE FOR UNKNOWN INDICATION
  7. ZYLORIC [Concomitant]
     Indication: DRUG USE FOR UNKNOWN INDICATION
  8. OMEPRAZOLE [Concomitant]
     Indication: DRUG USE FOR UNKNOWN INDICATION
  9. MINERALS NOS [Concomitant]
     Indication: DRUG USE FOR UNKNOWN INDICATION
  10. OMEGA-3 POLYUNSATURATED FATTY ACIDS [Concomitant]
     Indication: DRUG USE FOR UNKNOWN INDICATION
  11. VITAMINS NOS [Concomitant]
     Indication: DRUG USE FOR UNKNOWN INDICATION

REACTIONS (4)
  - AORTIC RUPTURE [None]
  - ARTERIAL RUPTURE [None]
  - DEATH [None]
  - FISTULA [None]
